FAERS Safety Report 5616004-7 (Version None)
Quarter: 2008Q1

REPORT INFORMATION
  Report Type: 
  Country: None (occurrence: None)
  Receive Date: 20080206
  Receipt Date: 20080125
  Transmission Date: 20080703
  Serious: Yes (Disabling, Other)
  Sender: FDA-Public Use
  Company Number: AU-PFIZER INC-2006130842

PATIENT
  Sex: Male
  Weight: 133 kg

DRUGS (10)
  1. LYRICA [Suspect]
     Indication: PERIPHERAL SENSORY NEUROPATHY
     Route: 048
     Dates: start: 20051025, end: 20051101
  2. ALL OTHER THERAPEUTIC PRODUCTS [Suspect]
  3. BURINEX [Concomitant]
     Route: 048
  4. LANOXIN [Concomitant]
     Route: 048
  5. AVANZA [Concomitant]
     Route: 048
  6. MIXTARD HUMAN 70/30 [Concomitant]
     Route: 058
  7. NOVOLOG MIX 70/30 [Concomitant]
  8. NOVORAPID [Concomitant]
  9. ALDACTONE [Concomitant]
  10. WARFARIN SODIUM [Concomitant]

REACTIONS (6)
  - BLOOD GLUCOSE INCREASED [None]
  - LABILE BLOOD PRESSURE [None]
  - LIVER FUNCTION TEST ABNORMAL [None]
  - PAIN [None]
  - PRESYNCOPE [None]
  - WEIGHT INCREASED [None]
